FAERS Safety Report 5049416-3 (Version None)
Quarter: 2006Q3

REPORT INFORMATION
  Report Type: 
  Country: None (occurrence: None)
  Receive Date: 20060711
  Receipt Date: 20060711
  Transmission Date: 20061208
  Serious: Yes (Other)
  Sender: FDA-Public Use
  Company Number: None

PATIENT
  Age: 60 Year
  Sex: Male
  Weight: 87.0906 kg

DRUGS (2)
  1. THALIDOMIDE     150 MG      CELGENE [Suspect]
     Indication: MULTIPLE MYELOMA
     Dosage: 150 MG   EVERY DAY  PO
     Route: 048
     Dates: start: 20060120, end: 20060606
  2. DEXAMETHASONE    20 MG [Suspect]
     Indication: MULTIPLE MYELOMA
     Dosage: 20 MG   EVERY DAY FOR 4 DA  PO
     Route: 048
     Dates: start: 20060120, end: 20060606

REACTIONS (3)
  - DEEP VEIN THROMBOSIS [None]
  - OEDEMA PERIPHERAL [None]
  - PNEUMONIA [None]
